FAERS Safety Report 14196594 (Version 3)
Quarter: 2018Q1

REPORT INFORMATION
  Report Type: Spontaneous
  Country: US (occurrence: US)
  Receive Date: 20171116
  Receipt Date: 20180215
  Transmission Date: 20180508
  Serious: No
  Sender: FDA-Public Use
  Company Number: US-MYLANLABS-2017M1069775

PATIENT
  Sex: Female
  Weight: 54 kg

DRUGS (1)
  1. LIDOCAINE PATCH [Suspect]
     Active Substance: LIDOCAINE
     Indication: BACK PAIN
     Dosage: 5 %, UNK
     Route: 062
     Dates: start: 20171001

REACTIONS (7)
  - Product quality issue [Unknown]
  - Application site swelling [Recovering/Resolving]
  - Application site erythema [Recovered/Resolved]
  - Application site pruritus [Recovered/Resolved]
  - Product adhesion issue [Unknown]
  - Off label use [Unknown]
  - Application site pain [Recovered/Resolved]
